FAERS Safety Report 9052034 (Version 3)
Quarter: 2013Q2

REPORT INFORMATION
  Report Type: Spontaneous
  Country: FR (occurrence: FR)
  Receive Date: 20130207
  Receipt Date: 20130501
  Transmission Date: 20140414
  Serious: Yes (Hospitalization, Disabling)
  Sender: FDA-Public Use
  Company Number: FR-B.I. PHARMACEUTICALS,INC./RIDGEFIELD-2013-FF-00354FF

PATIENT
  Age: 75 Year
  Sex: Female
  Weight: 70 kg

DRUGS (5)
  1. PRADAXA [Suspect]
     Indication: ARRHYTHMIA
     Dosage: 220 MG
     Route: 048
     Dates: start: 20120511, end: 20120623
  2. PRADAXA [Suspect]
     Indication: BUNDLE BRANCH BLOCK LEFT
  3. CORDARONE [Suspect]
     Indication: BUNDLE BRANCH BLOCK LEFT
     Dosage: 200 MG
     Route: 048
     Dates: start: 20120511
  4. AVLOCARDYL [Concomitant]
     Dosage: 40 MG
     Route: 048
     Dates: start: 20120611
  5. KENZEN [Concomitant]
     Indication: HYPERTENSION
     Dosage: 8 MG
     Route: 048
     Dates: start: 20120523, end: 20120623

REACTIONS (9)
  - Cerebral haemorrhage [Recovered/Resolved with Sequelae]
  - Intra-abdominal haemorrhage [Recovered/Resolved with Sequelae]
  - Spinal cord haemorrhage [Recovered/Resolved with Sequelae]
  - Paraplegia [Recovered/Resolved with Sequelae]
  - Spinal haematoma [Recovered/Resolved with Sequelae]
  - Haemorrhage [Recovered/Resolved with Sequelae]
  - Hepatic haemorrhage [Recovered/Resolved with Sequelae]
  - Subarachnoid haemorrhage [Recovered/Resolved with Sequelae]
  - Haemorrhage intracranial [Recovered/Resolved with Sequelae]
